FAERS Safety Report 20576570 (Version 1)
Quarter: 2022Q1

REPORT INFORMATION
  Report Type: Spontaneous
  Country: US (occurrence: None)
  Receive Date: 20220309
  Receipt Date: 20220309
  Transmission Date: 20220423
  Serious: Yes (Hospitalization, Other)
  Sender: FDA-Public Use
  Company Number: None

PATIENT
  Age: 63 Year
  Sex: Female

DRUGS (1)
  1. CAPECITABINE [Suspect]
     Active Substance: CAPECITABINE
     Indication: Colorectal cancer
     Dosage: FREQUENCY : TWICE A DAY;?
     Route: 048
     Dates: start: 202112, end: 20220221

REACTIONS (8)
  - Neoplasm progression [None]
  - Pyrexia [None]
  - Drug ineffective [None]
  - Nausea [None]
  - Diarrhoea [None]
  - Ovarian cyst [None]
  - Cytology abnormal [None]
  - Therapy interrupted [None]

NARRATIVE: CASE EVENT DATE: 20220221
